FAERS Safety Report 7329168-4 (Version None)
Quarter: 2011Q1

REPORT INFORMATION
  Report Type: 
  Country: None (occurrence: None)
  Receive Date: 20110303
  Receipt Date: 20110222
  Transmission Date: 20110831
  Serious: Yes (Hospitalization)
  Sender: FDA-Public Use
  Company Number: A0848990A

PATIENT
  Sex: Female
  Weight: 86.4 kg

DRUGS (1)
  1. AVANDIA [Suspect]
     Indication: DIABETES MELLITUS
     Route: 048
     Dates: start: 20030717, end: 20060821

REACTIONS (6)
  - WEIGHT INCREASED [None]
  - DYSPNOEA [None]
  - CARDIAC FAILURE CONGESTIVE [None]
  - BLOOD GLUCOSE DECREASED [None]
  - BLOOD DISORDER [None]
  - LOSS OF CONSCIOUSNESS [None]
